FAERS Safety Report 17405458 (Version 2)
Quarter: 2020Q1

REPORT INFORMATION
  Report Type: Spontaneous
  Country: ES (occurrence: ES)
  Receive Date: 20200212
  Receipt Date: 20200219
  Transmission Date: 20200409
  Serious: Yes (Death, Hospitalization, Other)
  Sender: FDA-Public Use
  Company Number: ES-AUROBINDO-AUR-APL-2020-006119

PATIENT
  Age: 67 Year
  Sex: Female
  Weight: 55 kg

DRUGS (19)
  1. CAELYX [Suspect]
     Active Substance: DOXORUBICIN HYDROCHLORIDE
     Indication: BREAST CANCER
     Dosage: 20 MILLIGRAM/SQ. METER 15 DAYS
     Route: 065
     Dates: start: 200907, end: 200909
  2. PACLITAXEL. [Suspect]
     Active Substance: PACLITAXEL
     Indication: BREAST CANCER
     Dosage: UNK
     Route: 065
     Dates: start: 201104, end: 201108
  3. HERCEPTIN [Suspect]
     Active Substance: TRASTUZUMAB
     Dosage: 4 MILLIGRAM/KILOGRAM 15 DAYS
     Route: 042
     Dates: start: 200907, end: 200909
  4. HERCEPTIN [Suspect]
     Active Substance: TRASTUZUMAB
     Dosage: UNK
     Route: 065
     Dates: start: 201104, end: 201108
  5. ERIBULIN [Suspect]
     Active Substance: ERIBULIN
     Indication: BREAST CANCER
     Dosage: UNK
     Route: 065
     Dates: start: 201203, end: 201206
  6. HERCEPTIN [Suspect]
     Active Substance: TRASTUZUMAB
     Indication: BREAST CANCER
     Dosage: 4 MILLIGRAM/KILOGRAM 14 DAYS
     Route: 065
     Dates: start: 20080410, end: 200907
  7. HERCEPTIN [Suspect]
     Active Substance: TRASTUZUMAB
     Dosage: 4 MILLIGRAM/KILOGRAM 14 DAYS
     Route: 042
     Dates: start: 201012, end: 201104
  8. GEMCITABINE. [Suspect]
     Active Substance: GEMCITABINE
     Indication: BREAST CANCER
     Dosage: UNK
     Route: 065
     Dates: start: 201108, end: 201112
  9. HERCEPTIN [Suspect]
     Active Substance: TRASTUZUMAB
     Dosage: UNK
     Route: 065
     Dates: start: 200909, end: 201002
  10. CARBOPLATIN. [Suspect]
     Active Substance: CARBOPLATIN
     Indication: BREAST CANCER
     Dosage: UNK
     Route: 065
     Dates: start: 201112, end: 201202
  11. HERCEPTIN [Suspect]
     Active Substance: TRASTUZUMAB
     Dosage: 6 MILLIGRAM/KILOGRAM 21 DAYS
     Route: 042
     Dates: start: 201112, end: 201202
  12. LAPATINIB [Suspect]
     Active Substance: LAPATINIB
     Indication: BREAST CANCER
     Dosage: 1000 MILLIGRAM, ONCE A DAY
     Route: 065
     Dates: start: 201002, end: 201011
  13. LAPATINIB [Suspect]
     Active Substance: LAPATINIB
     Dosage: UNK
     Route: 065
     Dates: start: 201011, end: 201012
  14. VINORELBINE [Suspect]
     Active Substance: VINORELBINE TARTRATE
     Indication: BREAST CANCER
     Dosage: 25 MILLIGRAM/SQ. METER 15 DAYS
     Route: 065
     Dates: start: 20080410, end: 200907
  15. LAPATINIB [Suspect]
     Active Substance: LAPATINIB
     Dosage: 1250 MILLIGRAM, ONCE A DAY
     Route: 065
     Dates: start: 201012, end: 201104
  16. TAXOTERE [Suspect]
     Active Substance: DOCETAXEL
     Indication: BREAST CANCER
     Dosage: UNK
     Route: 065
     Dates: start: 200909, end: 201002
  17. CAPECITABINE FILM COATED TABLET [Suspect]
     Active Substance: CAPECITABINE
     Indication: BREAST CANCER
     Dosage: 1000 MILLIGRAM/SQ. METER (DAYS 1-14 EVERY 21 DAYS)
     Route: 048
     Dates: start: 201002, end: 201011
  18. VINORELBINE [Suspect]
     Active Substance: VINORELBINE TARTRATE
     Dosage: UNK
     Route: 065
     Dates: start: 201011, end: 201012
  19. HERCEPTIN [Suspect]
     Active Substance: TRASTUZUMAB
     Dosage: UNK
     Route: 065
     Dates: start: 201108, end: 201112

REACTIONS (4)
  - Pulmonary embolism [Recovered/Resolved]
  - Mucosal inflammation [Recovered/Resolved]
  - Palmar-plantar erythrodysaesthesia syndrome [Recovered/Resolved]
  - Death [Fatal]

NARRATIVE: CASE EVENT DATE: 2009
